FAERS Safety Report 23534192 (Version 2)
Quarter: 2024Q1

REPORT INFORMATION
  Report Type: Spontaneous
  Country: US (occurrence: US)
  Receive Date: 20240216
  Receipt Date: 20240220
  Transmission Date: 20240410
  Serious: No
  Sender: FDA-Public Use
  Company Number: US-ABBVIE-5639475

PATIENT

DRUGS (1)
  1. LINZESS [Suspect]
     Active Substance: LINACLOTIDE
     Indication: Product used for unknown indication
     Dosage: STRENGTH: 290 MICROGRAM
     Route: 048

REACTIONS (4)
  - Intracranial mass [Unknown]
  - Gastrointestinal wall thickening [Unknown]
  - Drug ineffective [Unknown]
  - Gastrointestinal disorder [Unknown]
